FAERS Safety Report 9247683 (Version 4)
Quarter: 2013Q3

REPORT INFORMATION
  Report Type: Spontaneous
  Country: GB (occurrence: GB)
  Receive Date: 20130423
  Receipt Date: 20130912
  Transmission Date: 20140515
  Serious: Yes (Death, Other)
  Sender: FDA-Public Use
  Company Number: PHFR2013GB002323

PATIENT
  Age: 53 Year
  Sex: Female

DRUGS (1)
  1. CLOZARIL [Suspect]
     Indication: SCHIZOPHRENIA
     Dosage: UNK
     Route: 048
     Dates: start: 20051116

REACTIONS (6)
  - Toxicity to various agents [Fatal]
  - Antipsychotic drug level above therapeutic [Fatal]
  - Pneumonia [Fatal]
  - Suicide attempt [Unknown]
  - White blood cell count increased [Unknown]
  - Neutrophil count increased [Unknown]
